FAERS Safety Report 8592381-2 (Version None)
Quarter: 2012Q3

REPORT INFORMATION
  Report Type: 
  Country: None (occurrence: None)
  Receive Date: 20120814
  Receipt Date: 20120731
  Transmission Date: 20120928
  Serious: Yes (Life-Threatening)
  Sender: FDA-Public Use
  Company Number: IT-009507513-1208ITA001364

PATIENT

DRUGS (11)
  1. LASIX [Concomitant]
     Dosage: 125 MG, QD
     Route: 048
  2. LEVOTHYROXINE SODIUM [Concomitant]
     Route: 048
  3. KANRENOL [Suspect]
     Indication: CARDIAC FAILURE
     Dosage: 25 MG, QD
     Route: 048
     Dates: start: 20111101, end: 20120724
  4. ESCITALOPRAM [Concomitant]
     Route: 048
  5. ALGIX 30MG COMPRESSE RIVESTITE CON FILM [Concomitant]
     Route: 048
  6. TRAZODONE HCL [Concomitant]
  7. LOSARTAN POTASSIUM [Suspect]
     Dosage: 50 MG, QD
     Route: 048
     Dates: start: 20111101, end: 20120724
  8. OMEPRAZOLE [Concomitant]
     Route: 048
  9. INSULIN [Concomitant]
     Route: 058
  10. CARVEDILOL [Concomitant]
     Dosage: 6.25 MG, QD
     Route: 048
  11. ASPIRIN [Concomitant]
     Dosage: 100 MG, QD
     Route: 048

REACTIONS (1)
  - NODAL ARRHYTHMIA [None]
